FAERS Safety Report 7843619-8 (Version None)
Quarter: 2011Q4

REPORT INFORMATION
  Report Type: 
  Country: None (occurrence: None)
  Receive Date: 20111025
  Receipt Date: 20111019
  Transmission Date: 20120403
  Serious: Yes (Death)
  Sender: FDA-Public Use
  Company Number: US-CELGENEUS-163-21880-11082941

PATIENT
  Sex: Male
  Weight: 93.07 kg

DRUGS (8)
  1. VANCOMYCIN HCL [Concomitant]
     Indication: WOUND TREATMENT
     Route: 065
  2. NEURONTIN [Concomitant]
     Route: 065
  3. DIGOXIN [Concomitant]
     Indication: HYPERTENSION
     Route: 065
  4. NEPHRO-VITE [Concomitant]
     Route: 065
  5. CIPROFLOXACIN [Concomitant]
     Indication: WOUND TREATMENT
     Route: 065
  6. NIFEDIPINE [Concomitant]
     Indication: HYPERTENSION
     Route: 065
  7. MINOCYCLINE HCL [Concomitant]
     Indication: WOUND TREATMENT
     Route: 065
  8. REVLIMID [Suspect]
     Indication: MULTIPLE MYELOMA
     Dosage: 25 MILLIGRAM
     Route: 048
     Dates: start: 20110601, end: 20110801

REACTIONS (5)
  - CELLULITIS [None]
  - ASTHENIA [None]
  - MULTIPLE MYELOMA [None]
  - FAILURE TO THRIVE [None]
  - RENAL FAILURE CHRONIC [None]
